FAERS Safety Report 4327755-9 (Version None)
Quarter: 2004Q1

REPORT INFORMATION
  Report Type: 
  Country: None (occurrence: None)
  Receive Date: 20040325
  Receipt Date: 20040315
  Transmission Date: 20041129
  Serious: Yes (Hospitalization)
  Sender: FDA-Public Use
  Company Number: 2004014927

PATIENT
  Age: 3 Year
  Sex: Female
  Weight: 18 kg

DRUGS (5)
  1. SULPERAZON (CEFOPERAZONE, SULBACTAM) [Suspect]
     Indication: PYREXIA
     Dosage: 1 GRAM, INTRAVENOUS
     Route: 042
     Dates: start: 20031027, end: 20031028
  2. FAROPENEM SODIUM (FAROPENEM SODIUM) [Suspect]
     Indication: ILL-DEFINED DISORDER
     Dosage: ORAL
     Route: 048
     Dates: start: 20031001
  3. BIOFERMIN (LACTOBACILLUS ACIDOPHILUS, BACILLUS SUBTILLIS, STREPTOCOCCU [Concomitant]
  4. ALL OTHER THERAPEUTIC PRODUCTS [Concomitant]
  5. SOLITA-T1 INJECTION (GLUCOSE, SODIUM LACTATE, SODIUM CHLORIDE) [Concomitant]

REACTIONS (1)
  - EXANTHEM [None]
